FAERS Safety Report 10234451 (Version 1)
Quarter: 2014Q2

REPORT INFORMATION
  Report Type: Spontaneous
  Country: US (occurrence: US)
  Receive Date: 20140613
  Receipt Date: 20140613
  Transmission Date: 20141212
  Serious: No
  Sender: FDA-Public Use
  Company Number: US-009507513-1406USA005776

PATIENT
  Age: 26 Year
  Sex: Female

DRUGS (4)
  1. NEXPLANON [Suspect]
     Indication: CONTRACEPTION
     Dosage: 1 DF, UNK
     Route: 059
     Dates: start: 20131219
  2. RITALIN [Concomitant]
  3. CITALOPRAM [Concomitant]
  4. CYANOCOBALAMIN [Concomitant]

REACTIONS (7)
  - Unintended pregnancy [Unknown]
  - Abdominal distension [Not Recovered/Not Resolved]
  - Breast enlargement [Not Recovered/Not Resolved]
  - Nausea [Not Recovered/Not Resolved]
  - Headache [Not Recovered/Not Resolved]
  - Vaginal haemorrhage [Not Recovered/Not Resolved]
  - Medical device complication [Not Recovered/Not Resolved]
